FAERS Safety Report 13863321 (Version 2)
Quarter: 2019Q1

REPORT INFORMATION
  Report Type: Spontaneous
  Country: US (occurrence: US)
  Receive Date: 20170814
  Receipt Date: 20190205
  Transmission Date: 20190417
  Serious: No
  Sender: FDA-Public Use
  Company Number: US-CELGENEUS-USA-20170802349

PATIENT
  Age: 53 Year
  Sex: Male

DRUGS (4)
  1. REMICADE [Concomitant]
     Active Substance: INFLIXIMAB
     Indication: PSORIASIS
     Dosage: 5 MG/KG
     Route: 041
     Dates: start: 2015, end: 201808
  2. OTEZLA [Suspect]
     Active Substance: APREMILAST
     Indication: PSORIASIS
     Dosage: TITRATION PROTOCOL
     Route: 048
     Dates: start: 20170726
  3. REMICADE [Concomitant]
     Active Substance: INFLIXIMAB
     Indication: PSORIATIC ARTHROPATHY
     Dosage: 5 MG/KG
     Route: 041
     Dates: start: 201406
  4. OTEZLA [Suspect]
     Active Substance: APREMILAST
     Indication: PSORIATIC ARTHROPATHY
     Dosage: 60 MILLIGRAM
     Route: 048
     Dates: start: 20170802, end: 20170807

REACTIONS (5)
  - Myalgia [Recovered/Resolved]
  - Chills [Unknown]
  - Tinnitus [Recovering/Resolving]
  - Headache [Recovered/Resolved]
  - Sleep disorder [Not Recovered/Not Resolved]

NARRATIVE: CASE EVENT DATE: 20170806
